FAERS Safety Report 7260795 (Version 4)
Quarter: 2022Q4

REPORT INFORMATION
  Report Type: Spontaneous
  Country: US (occurrence: None)
  Receive Date: 20100129
  Receipt Date: 20221116
  Transmission Date: 20230113
  Serious: Yes (Hospitalization, Other)
  Sender: FDA-Public Use
  Company Number: US-ROCHE-680677

PATIENT
  Sex: Female

DRUGS (2)
  1. BONIVA [Suspect]
     Active Substance: IBANDRONATE SODIUM
     Indication: Osteoporosis
     Route: 065
     Dates: start: 2002, end: 2009
  2. FOSAMAX [Suspect]
     Active Substance: ALENDRONATE SODIUM
     Indication: Osteoporosis
     Route: 065
     Dates: start: 1995, end: 2002

REACTIONS (18)
  - Femur fracture [Unknown]
  - Hip fracture [Unknown]
  - Emotional distress [Unknown]
  - Anxiety [Unknown]
  - Low turnover osteopathy [Unknown]
  - Stress fracture [Unknown]
  - Delirium [Unknown]
  - Groin pain [Unknown]
  - Bone pain [Unknown]
  - Arthralgia [Unknown]
  - Fall [Unknown]
  - Joint range of motion decreased [Unknown]
  - Depression [Unknown]
  - Rash [Unknown]
  - Nail infection [Unknown]
  - Insomnia [Unknown]
  - Atelectasis [Unknown]
  - Bone swelling [Unknown]

NARRATIVE: CASE EVENT DATE: 20080101
